FAERS Safety Report 5767915-3 (Version None)
Quarter: 2008Q2

REPORT INFORMATION
  Report Type: 
  Country: None (occurrence: None)
  Receive Date: 20080612
  Receipt Date: 20080603
  Transmission Date: 20081010
  Serious: Yes (Life-Threatening, Other)
  Sender: FDA-Public Use
  Company Number: FR-PFIZER INC-2008044801

PATIENT
  Sex: Male
  Weight: 61 kg

DRUGS (2)
  1. SUTENT [Suspect]
     Indication: RENAL CANCER METASTATIC
     Dosage: DAILY DOSE:50MG
  2. NEBIVOLOL HCL [Concomitant]
     Dosage: FREQ:HALF TABLET PER DAY
     Route: 048

REACTIONS (8)
  - ANAEMIA [None]
  - AORTIC DISSECTION [None]
  - CHEST PAIN [None]
  - DISEASE PROGRESSION [None]
  - DRY MOUTH [None]
  - DYSGEUSIA [None]
  - NAUSEA [None]
  - RENAL CANCER METASTATIC [None]
